FAERS Safety Report 25300752 (Version 1)
Quarter: 2025Q2

REPORT INFORMATION
  Report Type: Spontaneous
  Country: GB (occurrence: GB)
  Receive Date: 20250512
  Receipt Date: 20250512
  Transmission Date: 20250717
  Serious: Yes (Other)
  Sender: MYLAN
  Company Number: None

PATIENT
  Age: 59 Year
  Sex: Female

DRUGS (12)
  1. APIXABAN [Suspect]
     Active Substance: APIXABAN
     Indication: Product used for unknown indication
  2. APIXABAN [Suspect]
     Active Substance: APIXABAN
     Route: 065
  3. APIXABAN [Suspect]
     Active Substance: APIXABAN
     Route: 065
  4. APIXABAN [Suspect]
     Active Substance: APIXABAN
  5. CISPLATIN [Concomitant]
     Active Substance: CISPLATIN
  6. CISPLATIN [Concomitant]
     Active Substance: CISPLATIN
     Route: 065
  7. CISPLATIN [Concomitant]
     Active Substance: CISPLATIN
     Route: 065
  8. CISPLATIN [Concomitant]
     Active Substance: CISPLATIN
  9. ETOPOSIDE [Concomitant]
     Active Substance: ETOPOSIDE
  10. ETOPOSIDE [Concomitant]
     Active Substance: ETOPOSIDE
     Route: 065
  11. ETOPOSIDE [Concomitant]
     Active Substance: ETOPOSIDE
     Route: 065
  12. ETOPOSIDE [Concomitant]
     Active Substance: ETOPOSIDE

REACTIONS (1)
  - Pulmonary embolism [Unknown]

NARRATIVE: CASE EVENT DATE: 20250506
